FAERS Safety Report 4500121-9 (Version None)
Quarter: 2004Q4

REPORT INFORMATION
  Report Type: 
  Country: None (occurrence: None)
  Receive Date: 20041110
  Receipt Date: 20041029
  Transmission Date: 20050328
  Serious: Yes (Other)
  Sender: FDA-Public Use
  Company Number: 2004085345

PATIENT
  Age: 74 Year
  Sex: Female
  Weight: 56.6996 kg

DRUGS (5)
  1. LISTERINE ANTISEPTIC MOUTHWASH (EUCALYPTOL, MENTHOL, METHYL SALICYLATE [Suspect]
     Indication: DENTAL DISORDER PROPHYLAXIS
     Dosage: ONE OUNCE TWICE A DAY, ORAL TOPICAL
     Route: 048
     Dates: start: 19990101, end: 20040101
  2. ATENOLOL [Concomitant]
  3. PANTOPRAZOLE (PANTOPRAZOLE) [Concomitant]
  4. CHLORTHIAZIDE (CHLORTHIAZIDE) [Concomitant]
  5. VALSARTAN (VALSARTAN) [Concomitant]

REACTIONS (2)
  - LICHEN PLANUS [None]
  - ORAL DISCOMFORT [None]
